FAERS Safety Report 23600387 (Version 1)
Quarter: 2024Q1

REPORT INFORMATION
  Report Type: Spontaneous
  Country: US (occurrence: US)
  Receive Date: 20240306
  Receipt Date: 20240306
  Transmission Date: 20240410
  Serious: Yes (Other)
  Sender: FDA-Public Use
  Company Number: US-MYLANLABS-2024M1020467

PATIENT
  Age: 67 Year
  Sex: Male

DRUGS (1)
  1. AMIODARONE [Suspect]
     Active Substance: AMIODARONE
     Indication: Ventricular extrasystoles
     Dosage: 200 MILLIGRAM, QD (RECEIVING FOR PAST 18 MONTHS)
     Route: 065

REACTIONS (3)
  - Bone marrow granuloma [Recovering/Resolving]
  - Pancytopenia [Recovering/Resolving]
  - Intentional product misuse [Recovering/Resolving]
